FAERS Safety Report 7497964-9 (Version None)
Quarter: 2011Q2

REPORT INFORMATION
  Report Type: 
  Country: None (occurrence: None)
  Receive Date: 20110524
  Receipt Date: 20110516
  Transmission Date: 20111010
  Serious: No
  Sender: FDA-Public Use
  Company Number: US-BIOGENIDEC-2010BI036037

PATIENT
  Sex: Male

DRUGS (1)
  1. TYSABRI [Suspect]
     Indication: MULTIPLE SCLEROSIS
     Route: 042
     Dates: start: 20090422

REACTIONS (6)
  - HYPERHIDROSIS [None]
  - ASTHENIA [None]
  - COORDINATION ABNORMAL [None]
  - MALAISE [None]
  - OEDEMA PERIPHERAL [None]
  - AGRAPHIA [None]
